FAERS Safety Report 5015327-2 (Version None)
Quarter: 2006Q2

REPORT INFORMATION
  Report Type: 
  Country: None (occurrence: None)
  Receive Date: 20060601
  Receipt Date: 20060522
  Transmission Date: 20061013
  Serious: Yes (Other)
  Sender: FDA-Public Use
  Company Number: IT-AVENTIS-200615478GDDC

PATIENT
  Age: 59 Year
  Sex: Male

DRUGS (10)
  1. TAXOTERE [Suspect]
     Indication: METASTASES TO LIVER
     Route: 042
     Dates: start: 20050216, end: 20050216
  2. TAXOTERE [Suspect]
     Route: 042
     Dates: start: 20050316, end: 20050426
  3. WARFARIN [Concomitant]
     Dosage: DOSE: UNK
     Route: 048
     Dates: start: 20041201, end: 20050601
  4. REPAGLINIDE [Concomitant]
     Indication: DIABETES MELLITUS
     Route: 048
     Dates: start: 20041201, end: 20050601
  5. RAMIPRIL [Concomitant]
     Indication: HYPERTENSION
     Route: 048
     Dates: start: 20041201, end: 20050601
  6. NITROGLYCERIN [Concomitant]
     Route: 061
     Dates: start: 20041001, end: 20050601
  7. METPHORMIN [Concomitant]
     Indication: DIABETES MELLITUS
     Route: 048
     Dates: start: 20041201, end: 20050601
  8. CHLORTHALIDONE [Concomitant]
     Indication: HYPERTENSION
     Route: 048
     Dates: start: 20041201, end: 20050601
  9. CARVEDILOL [Concomitant]
     Indication: HYPERTENSION
     Route: 048
     Dates: start: 20041201, end: 20050601
  10. AMLODIPINE [Concomitant]
     Indication: HYPERTENSION
     Route: 048
     Dates: start: 20041201, end: 20050601

REACTIONS (5)
  - ANURIA [None]
  - HAEMODIALYSIS [None]
  - ORGAN FAILURE [None]
  - RENAL FAILURE [None]
  - RENAL FAILURE CHRONIC [None]
